FAERS Safety Report 24994381 (Version 1)
Quarter: 2025Q1

REPORT INFORMATION
  Report Type: Spontaneous
  Country: US (occurrence: None)
  Receive Date: 20250220
  Receipt Date: 20250220
  Transmission Date: 20250408
  Serious: Yes (Hospitalization)
  Sender: FDA-CTU
  Company Number: None

PATIENT
  Age: 72 Year

DRUGS (1)
  1. CEFEPIME HYDROCHLORIDE [Suspect]
     Active Substance: CEFEPIME HYDROCHLORIDE
     Indication: Sepsis
     Route: 042
     Dates: start: 20240618, end: 20240618

REACTIONS (4)
  - Seizure [None]
  - Hypotension [None]
  - Lactic acidosis [None]
  - Pneumonia [None]

NARRATIVE: CASE EVENT DATE: 20240618
